FAERS Safety Report 5467663-3 (Version None)
Quarter: 2007Q3

REPORT INFORMATION
  Report Type: 
  Country: None (occurrence: None)
  Receive Date: 20070921
  Receipt Date: 20070725
  Transmission Date: 20080115
  Serious: Yes (Hospitalization)
  Sender: FDA-Public Use
  Company Number: 2007VX001933

PATIENT
  Age: 47 Year
  Sex: Male
  Weight: 84 kg

DRUGS (3)
  1. INTERFERON ALFACON-1 (INTERFERON ALFACON-1) [Suspect]
     Indication: HEPATITIS C
     Dosage: 18 UG; QD; SC, 8 UG; QD; SC
     Route: 058
     Dates: start: 20060626, end: 20061015
  2. INTERFERON ALFACON-1 (INTERFERON ALFACON-1) [Suspect]
     Indication: HEPATITIS C
     Dosage: 18 UG; QD; SC, 8 UG; QD; SC
     Route: 058
     Dates: start: 20061016, end: 20070104
  3. RIBAVIRIN [Suspect]
     Indication: HEPATITIS C
     Dosage: 1000 MG; QD; PO
     Route: 048
     Dates: start: 20060918, end: 20070105

REACTIONS (2)
  - CHOLECYSTITIS [None]
  - CHOLELITHIASIS [None]
